FAERS Safety Report 5099864-0 (Version None)
Quarter: 2006Q3

REPORT INFORMATION
  Report Type: 
  Country: None (occurrence: None)
  Receive Date: 20060906
  Receipt Date: 20060906
  Transmission Date: 20061208
  Serious: Yes (Life-Threatening)
  Sender: FDA-Public Use
  Company Number: None

PATIENT
  Age: 56 Year
  Sex: Female
  Weight: 63.5036 kg

DRUGS (1)
  1. CREST SENSITIVITY-MAXIMU   PROCTOR AND GAMBLE [Suspect]
     Indication: SENSITIVITY OF TEETH
     Dosage: SMALL RIBBON OF TOOTHPASTE BRUSH 2X A DAY DENTAL
     Route: 004
     Dates: start: 20060101, end: 20060323

REACTIONS (8)
  - ADVERSE DRUG REACTION [None]
  - CEREBROVASCULAR SPASM [None]
  - DIARRHOEA [None]
  - MALAISE [None]
  - NEUROLOGICAL SYMPTOM [None]
  - PHARMACEUTICAL PRODUCT COMPLAINT [None]
  - URINARY TRACT DISORDER [None]
  - VOMITING [None]
